FAERS Safety Report 4952709-9 (Version None)
Quarter: 2006Q1

REPORT INFORMATION
  Report Type: 
  Country: None (occurrence: None)
  Receive Date: 20060321
  Receipt Date: 20060308
  Transmission Date: 20060701
  Serious: Yes (Hospitalization, Other)
  Sender: FDA-Public Use
  Company Number: HQ5451021NOV2002

PATIENT
  Age: 78 Year
  Sex: Male
  Weight: 120.31 kg

DRUGS (10)
  1. MYLOTARG [Suspect]
     Indication: ACUTE MYELOID LEUKAEMIA
     Dosage: SEE IMAGE
     Route: 042
     Dates: start: 20021112, end: 20021112
  2. MYLOTARG [Suspect]
     Indication: ACUTE MYELOID LEUKAEMIA
     Dosage: SEE IMAGE
     Route: 042
     Dates: start: 20021126, end: 20021126
  3. FLOMAX [Concomitant]
  4. FOLATE SODIUM [Concomitant]
  5. PRAVACHOL [Concomitant]
  6. PREVACID [Concomitant]
  7. VERAPAMIL [Concomitant]
  8. ACYCLOVIR [Concomitant]
  9. DIFLUCAN [Concomitant]
  10. OCUVITE (MULTIVITAMIN/MULTIMINERAL) [Concomitant]

REACTIONS (4)
  - FEBRILE NEUTROPENIA [None]
  - HYPOTENSION [None]
  - INFUSION RELATED REACTION [None]
  - PNEUMONIA [None]
